FAERS Safety Report 6633073-6 (Version None)
Quarter: 2010Q1

REPORT INFORMATION
  Report Type: 
  Country: None (occurrence: None)
  Receive Date: 20100312
  Receipt Date: 20100301
  Transmission Date: 20100710
  Serious: Yes (Disabling, Other)
  Sender: FDA-Public Use
  Company Number: PHEH2008US08641

PATIENT
  Sex: Male

DRUGS (24)
  1. AREDIA [Suspect]
     Dosage: 90 G, UNK
     Dates: start: 20031020, end: 20060908
  2. FOSAMAX [Suspect]
  3. ACTONEL [Suspect]
  4. ZOFRAN [Concomitant]
  5. INSULIN HUMAN [Concomitant]
  6. VALIUM [Concomitant]
  7. NITROGLIN [Concomitant]
     Route: 042
  8. VANCOMYCIN [Concomitant]
  9. NEXIUM [Concomitant]
  10. LOPRESSOR [Concomitant]
  11. MILK OF MAGNESIA TAB [Concomitant]
  12. COLACE [Concomitant]
  13. ZOCOR [Concomitant]
  14. MORPHINE [Concomitant]
     Route: 042
  15. ACETAMINOPHEN [Concomitant]
  16. OXYCODONE [Concomitant]
  17. XANAX [Concomitant]
  18. SIMVASTATIN [Concomitant]
  19. DOBUTAMINE [Concomitant]
  20. COUMADIN [Concomitant]
  21. ECOTRIN [Concomitant]
  22. ALPRAZOLAM [Concomitant]
  23. ESOMEPRAZOLE [Concomitant]
  24. AVANDIA [Concomitant]

REACTIONS (19)
  - ACUTE MYOCARDIAL INFARCTION [None]
  - ANHEDONIA [None]
  - ANXIETY [None]
  - ARTHRITIS [None]
  - CORONARY ARTERY BYPASS [None]
  - DENTAL IMPRESSION PROCEDURE [None]
  - DENTURE WEARER [None]
  - DIABETES MELLITUS [None]
  - DYSPNOEA [None]
  - GASTRIC ULCER [None]
  - GASTROOESOPHAGEAL REFLUX DISEASE [None]
  - HYPERCHOLESTEROLAEMIA [None]
  - INJURY [None]
  - NEPHROLITHIASIS [None]
  - OSTEONECROSIS [None]
  - PAIN [None]
  - PEPTIC ULCER [None]
  - ROTATOR CUFF SYNDROME [None]
  - TOOTH FRACTURE [None]
